FAERS Safety Report 9883156 (Version 3)
Quarter: 2014Q1

REPORT INFORMATION
  Report Type: Report from Study
  Country: CA (occurrence: CA)
  Receive Date: 20140208
  Receipt Date: 20140227
  Transmission Date: 20141002
  Serious: Yes (Hospitalization, Other)
  Sender: FDA-Public Use
  Company Number: CA-ROCHE-1239022

PATIENT
  Age: 74 Year
  Sex: Male
  Weight: 72.6 kg

DRUGS (18)
  1. RITUXAN [Suspect]
     Indication: RHEUMATOID ARTHRITIS
     Route: 042
     Dates: start: 20130603
  2. DIPHENHYDRAMINE HCL [Concomitant]
     Indication: PREMEDICATION
     Route: 048
     Dates: start: 20130617
  3. ACETAMINOPHEN [Concomitant]
     Indication: PREMEDICATION
     Route: 048
     Dates: start: 20130617
  4. METHYLPREDNISOLONE [Concomitant]
     Indication: PREMEDICATION
     Route: 042
     Dates: start: 20130617
  5. DIAMICRON MR [Concomitant]
  6. RABEPRAZOLE [Concomitant]
  7. RISEDRONATE [Concomitant]
  8. PRAVASTATIN [Concomitant]
  9. NITRO-DUR [Concomitant]
  10. AMLODIPINE [Concomitant]
  11. RAMIPRIL [Concomitant]
  12. INFUFER [Concomitant]
  13. ULTRAM [Concomitant]
  14. FERROUS SULFATE [Concomitant]
  15. DOMPERIDONE [Concomitant]
  16. BETAHISTINE [Concomitant]
  17. CALCITONIN [Concomitant]
     Route: 065
  18. LANTUS [Concomitant]

REACTIONS (6)
  - Pneumonia [Unknown]
  - Infection [Unknown]
  - Prostate cancer [Unknown]
  - Confusional state [Not Recovered/Not Resolved]
  - Blood pressure increased [Unknown]
  - Arthralgia [Unknown]
